FAERS Safety Report 16610095 (Version 1)
Quarter: 2019Q3

REPORT INFORMATION
  Report Type: Spontaneous
  Country: US (occurrence: US)
  Receive Date: 20190721
  Receipt Date: 20190721
  Transmission Date: 20191004
  Serious: No
  Sender: FDA-Public Use
  Company Number: None

PATIENT
  Age: 50 Year
  Sex: Male
  Weight: 112.5 kg

DRUGS (8)
  1. SIMVASTATIN. [Concomitant]
     Active Substance: SIMVASTATIN
  2. PANTOPPRAZOLE [Concomitant]
  3. HYDROXYZINE [Concomitant]
     Active Substance: HYDROXYZINE HYDROCHLORIDE
  4. TYLENOL [Concomitant]
     Active Substance: ACETAMINOPHEN
  5. MULTIHANCE [Suspect]
     Active Substance: GADOBENATE DIMEGLUMINE
     Indication: NUCLEAR MAGNETIC RESONANCE IMAGING BRAIN
     Route: 042
     Dates: start: 20051022
  6. VESICARE [Concomitant]
     Active Substance: SOLIFENACIN SUCCINATE
  7. FINASTERIDE. [Concomitant]
     Active Substance: FINASTERIDE
  8. DICLOFENAC [Concomitant]
     Active Substance: DICLOFENAC

REACTIONS (15)
  - Erythema [None]
  - Abdominal discomfort [None]
  - Feeling abnormal [None]
  - Burning sensation [None]
  - Paraesthesia [None]
  - Urinary incontinence [None]
  - Musculoskeletal pain [None]
  - Pruritus generalised [None]
  - Lacrimation increased [None]
  - Rash [None]
  - Diplopia [None]
  - Vision blurred [None]
  - Xanthopsia [None]
  - Formication [None]
  - Burn oesophageal [None]

NARRATIVE: CASE EVENT DATE: 20170211
